FAERS Safety Report 17277530 (Version 3)
Quarter: 2020Q1

REPORT INFORMATION
  Report Type: Report from Study
  Country: JP (occurrence: JP)
  Receive Date: 20200116
  Receipt Date: 20200326
  Transmission Date: 20200409
  Serious: Yes (Hospitalization)
  Sender: FDA-Public Use
  Company Number: JP-ELI_LILLY_AND_COMPANY-JP202001006113

PATIENT
  Age: 43 Year
  Sex: Female

DRUGS (5)
  1. IXEKIZUMAB [Suspect]
     Active Substance: IXEKIZUMAB
     Indication: PUSTULAR PSORIASIS
     Dosage: 160 MG
     Route: 058
     Dates: start: 20180626, end: 20180626
  2. CLOTIAZEPAM [Concomitant]
     Active Substance: CLOTIAZEPAM
     Indication: INSOMNIA
     Route: 048
  3. BROTIZOLAM [Concomitant]
     Active Substance: BROTIZOLAM
     Indication: INSOMNIA
     Route: 048
  4. DOVOBET [Concomitant]
     Active Substance: BETAMETHASONE\CALCIPOTRIENE
     Indication: PUSTULAR PSORIASIS
     Dosage: UNK
     Route: 062
  5. BELSOMRA [Concomitant]
     Active Substance: SUVOREXANT
     Indication: INSOMNIA
     Route: 048

REACTIONS (1)
  - Cellulitis [Recovered/Resolved]

NARRATIVE: CASE EVENT DATE: 20180704
